FAERS Safety Report 12753131 (Version 1)
Quarter: 2016Q3

REPORT INFORMATION
  Report Type: Spontaneous
  Country: US (occurrence: US)
  Receive Date: 20160916
  Receipt Date: 20160916
  Transmission Date: 20161109
  Serious: No
  Sender: FDA-Public Use
  Company Number: US-ASTRAZENECA-2016SE94695

PATIENT
  Sex: Female
  Weight: 111.7 kg

DRUGS (2)
  1. ENOXAPARIN [Concomitant]
     Active Substance: ENOXAPARIN
     Indication: THROMBOSIS PROPHYLAXIS
     Route: 065
     Dates: start: 20151013
  2. ANASTROZOLE. [Suspect]
     Active Substance: ANASTROZOLE
     Indication: PROPHYLAXIS
     Route: 048
     Dates: start: 201606

REACTIONS (11)
  - Pollakiuria [Unknown]
  - Hypoaesthesia [Unknown]
  - Insomnia [Unknown]
  - Pain in extremity [Unknown]
  - Paraesthesia [Unknown]
  - Off label use [Unknown]
  - Hallucination [Unknown]
  - Weight decreased [Unknown]
  - Product use issue [Unknown]
  - Confabulation [Unknown]
  - Gait disturbance [Unknown]
